FAERS Safety Report 5714284-0 (Version None)
Quarter: 2008Q2

REPORT INFORMATION
  Report Type: 
  Country: None (occurrence: None)
  Receive Date: 20080421
  Receipt Date: 20080403
  Transmission Date: 20081010
  Serious: Yes (Other)
  Sender: FDA-Public Use
  Company Number: 8031622

PATIENT
  Age: 83 Year
  Sex: Female

DRUGS (7)
  1. KEPPRA [Suspect]
     Indication: CONVULSION
     Dosage: 2.5 MG ONCE IV
     Route: 042
     Dates: start: 20071217, end: 20071217
  2. PREVISCAN [Concomitant]
  3. CARDENSIEL [Concomitant]
  4. LASILIX [Concomitant]
  5. IKOREL [Concomitant]
  6. DIFFU K [Concomitant]
  7. ORELOX [Concomitant]

REACTIONS (7)
  - ACCIDENTAL OVERDOSE [None]
  - DISSEMINATED INTRAVASCULAR COAGULATION [None]
  - GENERAL PHYSICAL HEALTH DETERIORATION [None]
  - HEPATITIS ACUTE [None]
  - PLEURAL EFFUSION [None]
  - SEPSIS [None]
  - SOMNOLENCE [None]
